FAERS Safety Report 25139114 (Version 1)
Quarter: 2025Q1

REPORT INFORMATION
  Report Type: Spontaneous
  Country: US (occurrence: US)
  Receive Date: 20250331
  Receipt Date: 20250331
  Transmission Date: 20250409
  Serious: No
  Sender: SANOFI AVENTIS
  Company Number: US-SA-2025SA087662

PATIENT
  Age: 59 Year
  Sex: Male

DRUGS (1)
  1. DUPIXENT [Suspect]
     Active Substance: DUPILUMAB
     Indication: Dermatitis atopic
     Dosage: 300MG
     Route: 058
     Dates: start: 202501

REACTIONS (4)
  - Rash pruritic [Unknown]
  - Rash erythematous [Not Recovered/Not Resolved]
  - Dermatitis atopic [Unknown]
  - Rash [Unknown]

NARRATIVE: CASE EVENT DATE: 20250201
